FAERS Safety Report 10059142 (Version 1)
Quarter: 2014Q2

REPORT INFORMATION
  Report Type: Spontaneous
  Country: US (occurrence: US)
  Receive Date: 20140404
  Receipt Date: 20140404
  Transmission Date: 20141212
  Serious: No
  Sender: FDA-Public Use
  Company Number: US-GLAXOSMITHKLINE-A1019959A

PATIENT
  Age: 54 Year
  Sex: Male

DRUGS (2)
  1. ALLI [Suspect]
     Indication: WEIGHT DECREASED
     Route: 048
  2. CENTRUM WITH MINERALS [Suspect]
     Indication: SUPPLEMENTATION THERAPY
     Route: 048

REACTIONS (4)
  - Drug interaction [Not Recovered/Not Resolved]
  - Hypersensitivity [Not Recovered/Not Resolved]
  - Paraesthesia [Not Recovered/Not Resolved]
  - Local swelling [Not Recovered/Not Resolved]
